FAERS Safety Report 9194216 (Version 3)
Quarter: 2013Q2

REPORT INFORMATION
  Report Type: Report from Study
  Country: US (occurrence: US)
  Receive Date: 20130327
  Receipt Date: 20130617
  Transmission Date: 20140414
  Serious: Yes (Life-Threatening, Hospitalization, Other)
  Sender: FDA-Public Use
  Company Number: US-MPIJNJ-2013-02350

PATIENT
  Age: 14 Year
  Sex: Female
  Weight: 62.1 kg

DRUGS (7)
  1. VELCADE [Suspect]
     Indication: ACUTE MYELOID LEUKAEMIA
     Dosage: 1.3 MG/M2, CYCLIC
     Route: 040
     Dates: start: 20130312, end: 20130320
  2. CYTARABINE [Suspect]
     Indication: ACUTE MYELOID LEUKAEMIA
     Dosage: UNK, CYCLIC
     Route: 037
     Dates: start: 20130312, end: 20130322
  3. CYTARABINE [Suspect]
     Dosage: 100 MG/M2, CYCLIC
     Route: 042
     Dates: start: 20130312, end: 20130322
  4. DAUNORUBICIN HYDROCHLORIDE [Suspect]
     Indication: ACUTE MYELOID LEUKAEMIA
     Dosage: 50 MG/M2, CYCLIC
     Route: 042
     Dates: start: 20130312, end: 20130317
  5. ETOPOSIDE [Suspect]
     Indication: ACUTE MYELOID LEUKAEMIA
     Dosage: 100 MG/M2, CYCLIC
     Route: 042
     Dates: start: 20130312, end: 20130317
  6. HYDROCORTISONE SODIUM SUCCINATE [Suspect]
     Indication: PRODUCT USED FOR UNKNOWN INDICATION
     Route: 065
  7. METHYLPREDNISOLONE [Suspect]
     Indication: PRODUCT USED FOR UNKNOWN INDICATION
     Route: 065

REACTIONS (12)
  - Tracheal inflammation [Recovering/Resolving]
  - Hypoxia [Recovering/Resolving]
  - Laryngeal inflammation [Recovering/Resolving]
  - Pharyngeal inflammation [Recovering/Resolving]
  - Wheezing [Recovering/Resolving]
  - Bronchitis [Recovering/Resolving]
  - Acute respiratory distress syndrome [Recovering/Resolving]
  - Atelectasis [Recovering/Resolving]
  - Adrenal insufficiency [Recovering/Resolving]
  - Hyperglycaemia [Recovering/Resolving]
  - Blood bilirubin increased [Recovering/Resolving]
  - Gamma-glutamyltransferase increased [Recovering/Resolving]
